FAERS Safety Report 4391130-1 (Version None)
Quarter: 2004Q2

REPORT INFORMATION
  Report Type: 
  Country: None (occurrence: None)
  Receive Date: 20040621
  Receipt Date: 20031201
  Transmission Date: 20050107
  Serious: Yes (Death)
  Sender: FDA-Public Use
  Company Number: USA-2003-0011586

PATIENT
  Age: 41 Year
  Sex: Male
  Weight: 95.2 kg

DRUGS (6)
  1. OXYCODONE HCL [Suspect]
     Dosage: UNK MG
  2. HYDROCODONE BITARTRATE [Suspect]
     Dosage: UNK MG
  3. FENTANYL [Suspect]
     Dosage: UNK MG
  4. ACETAMINOPHEN [Suspect]
  5. PHENOBARBITAL TAB [Suspect]
  6. CHLORPHENIRAMINE TAB [Suspect]

REACTIONS (1)
  - OVERDOSE [None]
